FAERS Safety Report 4416716-7 (Version None)
Quarter: 2004Q3

REPORT INFORMATION
  Report Type: 
  Country: None (occurrence: None)
  Receive Date: 20040805
  Receipt Date: 20040720
  Transmission Date: 20050211
  Serious: Yes (Death, Life-Threatening, Hospitalization)
  Sender: FDA-Public Use
  Company Number: FR-MERCK-0407FRA00058

PATIENT
  Age: 68 Year
  Sex: Male
  Weight: 83 kg

DRUGS (3)
  1. AZATHIOPRINE [Concomitant]
     Indication: VASCULITIS
     Route: 048
     Dates: start: 20040401, end: 20040512
  2. ZOCOR [Suspect]
     Indication: HYPERCHOLESTEROLAEMIA
     Route: 048
     Dates: start: 20040130, end: 20040512
  3. SULFAMETHOXAZOLE AND TRIMETHOPRIM [Concomitant]
     Indication: INFECTION PROPHYLAXIS
     Route: 048
     Dates: start: 20040401, end: 20040512

REACTIONS (7)
  - ACUTE RESPIRATORY DISTRESS SYNDROME [None]
  - HEPATITIS [None]
  - LUNG ABSCESS [None]
  - MULTI-ORGAN FAILURE [None]
  - PNEUMONITIS [None]
  - PULMONARY EMBOLISM [None]
  - PULMONARY FIBROSIS [None]
